FAERS Safety Report 5988209-7 (Version None)
Quarter: 2008Q4

REPORT INFORMATION
  Report Type: 
  Country: None (occurrence: None)
  Receive Date: 20081204
  Receipt Date: 20081121
  Transmission Date: 20090506
  Serious: Yes (Hospitalization)
  Sender: FDA-Public Use
  Company Number: ABX74-08-0496

PATIENT
  Age: 59 Year
  Sex: Female
  Weight: 122 kg

DRUGS (10)
  1. ABRAXANE [Suspect]
     Indication: BREAST CANCER METASTATIC
     Dosage: 330 MG, INTRAVENOUS
     Route: 042
     Dates: start: 20080915
  2. GEMZAR [Suspect]
     Indication: BREAST CANCER METASTATIC
     Dosage: 3300 MG, INTRAVENOUS
     Route: 042
     Dates: start: 20080915
  3. AVASTIN [Suspect]
     Indication: BREAST CANCER METASTATIC
     Dosage: 1220 MG, INTRAVNEOUS
     Route: 042
     Dates: start: 20080915
  4. FLUCONAZOLE [Concomitant]
  5. ESOMEPRAZOLE MAGNESIUM [Concomitant]
  6. ONDANSETRON HCL [Concomitant]
  7. PROCHLORPERAZINE MALEATE [Concomitant]
  8. ACETAMINOPHEN [Concomitant]
  9. METFORMIN HCL [Concomitant]
  10. PIOGLITAZONE HCL [Concomitant]

REACTIONS (11)
  - ABSCESS LIMB [None]
  - BLOOD GLUCOSE INCREASED [None]
  - BLOOD PRESSURE SYSTOLIC DECREASED [None]
  - BLOOD UREA DECREASED [None]
  - CELLULITIS [None]
  - CULTURE POSITIVE [None]
  - CULTURE WOUND POSITIVE [None]
  - HEART RATE INCREASED [None]
  - NAUSEA [None]
  - STAPHYLOCOCCAL INFECTION [None]
  - VOMITING [None]
